FAERS Safety Report 9506579 (Version 1)
Quarter: 2013Q1

REPORT INFORMATION
  Report Type: Spontaneous
  Country: US (occurrence: None)
  Receive Date: 20130305
  Receipt Date: 20130305
  Transmission Date: 20140127
  Serious: Yes (Hospitalization)
  Sender: FDA-Public Use
  Company Number: 163-21880-12030198

PATIENT
  Age: 77 Year
  Sex: Male
  Weight: 63.5 kg

DRUGS (3)
  1. REVLIMID [Suspect]
     Indication: RENAL CELL CARCINOMA
     Dosage: 10 MG, 1 IN 1 D, PO
     Route: 048
     Dates: start: 20120209, end: 20120229
  2. PREVACID (LANSOPRAZOLE) (UNKNOWN) [Concomitant]
  3. FERROUS SULFATE (FERROUS SULFATE) (UNKNOWN) [Concomitant]

REACTIONS (2)
  - Metastases to central nervous system [None]
  - Decreased appetite [None]
